FAERS Safety Report 24913764 (Version 1)
Quarter: 2025Q1

REPORT INFORMATION
  Report Type: Spontaneous
  Country: US (occurrence: US)
  Receive Date: 20250202
  Receipt Date: 20250202
  Transmission Date: 20250409
  Serious: No
  Sender: SANOFI AVENTIS
  Company Number: US-SA-2025SA029540

PATIENT
  Sex: Female
  Weight: 65 kg

DRUGS (23)
  1. DUPIXENT [Suspect]
     Active Substance: DUPILUMAB
     Indication: Dermatitis atopic
     Dosage: 300 MG, QOW
     Route: 058
  2. ATORVASTATIN CALCIUM [Concomitant]
     Active Substance: ATORVASTATIN CALCIUM
  3. FLONASE ALLERGY RELIEF [Concomitant]
     Active Substance: FLUTICASONE PROPIONATE
  4. CALCIUM [Concomitant]
     Active Substance: CALCIUM
  5. METFORMIN [Concomitant]
     Active Substance: METFORMIN HYDROCHLORIDE
  6. TRULICITY [Concomitant]
     Active Substance: DULAGLUTIDE
  7. NOVOLOG [Concomitant]
     Active Substance: INSULIN ASPART
  8. KENALOG [Concomitant]
     Active Substance: TRIAMCINOLONE ACETONIDE
  9. ISOSORBIDE DINITRATE [Concomitant]
     Active Substance: ISOSORBIDE DINITRATE
  10. AMBIEN [Concomitant]
     Active Substance: ZOLPIDEM TARTRATE
  11. DETROL [Concomitant]
     Active Substance: TOLTERODINE TARTRATE
  12. LANTUS SOLOSTAR [Concomitant]
     Active Substance: INSULIN GLARGINE
  13. VISTARIL [Concomitant]
     Active Substance: HYDROXYZINE PAMOATE
  14. PROTONIX [Concomitant]
     Active Substance: PANTOPRAZOLE SODIUM
  15. ATENOLOL [Concomitant]
     Active Substance: ATENOLOL
  16. ASPIRIN [Concomitant]
     Active Substance: ASPIRIN
  17. AMITRIPTYLINE HYDROCHLORIDE [Concomitant]
     Active Substance: AMITRIPTYLINE HYDROCHLORIDE
  18. DULOXETINE HYDROCHLORIDE [Concomitant]
     Active Substance: DULOXETINE HYDROCHLORIDE
  19. PEPCID [Concomitant]
     Active Substance: FAMOTIDINE
  20. PREMARIN [Concomitant]
     Active Substance: ESTROGENS, CONJUGATED
  21. GABAPENTIN [Concomitant]
     Active Substance: GABAPENTIN
  22. ALLEGRA ALLERGY [Concomitant]
     Active Substance: FEXOFENADINE HYDROCHLORIDE
  23. ALENDRONATE SODIUM [Concomitant]
     Active Substance: ALENDRONATE SODIUM

REACTIONS (1)
  - Malaise [Unknown]
